FAERS Safety Report 25237931 (Version 1)
Quarter: 2025Q2

REPORT INFORMATION
  Report Type: Spontaneous
  Country: US (occurrence: US)
  Receive Date: 20250425
  Receipt Date: 20250425
  Transmission Date: 20250717
  Serious: Yes (Hospitalization)
  Sender: ROCHE
  Company Number: US-ROCHE-10000264031

PATIENT
  Age: 24 Year
  Sex: Male

DRUGS (4)
  1. RITUXIMAB [Suspect]
     Active Substance: RITUXIMAB
     Indication: Multiple sclerosis
     Route: 065
  2. POLYMYXIN [Concomitant]
     Active Substance: POLYMYXIN
  3. NEOMYCIN [Concomitant]
     Active Substance: NEOMYCIN
  4. HYDROCORTISONE [Concomitant]
     Active Substance: HYDROCORTISONE

REACTIONS (3)
  - Mycoplasma infection [Unknown]
  - Otitis media acute [Unknown]
  - Facial paralysis [Recovered/Resolved]
